FAERS Safety Report 21188632 (Version 1)
Quarter: 2022Q3

REPORT INFORMATION
  Report Type: Report from Study
  Country: US (occurrence: US)
  Receive Date: 20220809
  Receipt Date: 20220809
  Transmission Date: 20221026
  Serious: Yes (Other)
  Sender: FDA-Public Use
  Company Number: US-BRISTOL-MYERS SQUIBB COMPANY-2022-082568

PATIENT
  Age: 42 Year
  Sex: Female
  Weight: 78.01 kg

DRUGS (1)
  1. REVLIMID [Suspect]
     Active Substance: LENALIDOMIDE
     Indication: Plasma cell myeloma
     Dosage: 25 MG, 21 OF 28 DAYS
     Route: 048
     Dates: start: 20220607

REACTIONS (3)
  - Joint swelling [Unknown]
  - Constipation [Unknown]
  - Spinal fracture [Unknown]
